FAERS Safety Report 8726221 (Version 3)
Quarter: 2012Q4

REPORT INFORMATION
  Report Type: 
  Country: FR (occurrence: FR)
  Receive Date: 20120816
  Receipt Date: 20120907
  Transmission Date: 20130627
  Serious: Yes (Hospitalization)
  Sender: FDA-Public Use
  Company Number: FR-PFIZER INC-2012195231

PATIENT
  Age: 17 Year
  Sex: Female
  Weight: 59.8 kg

DRUGS (11)
  1. ADVIL [Suspect]
     Dosage: 600 mg total dose
     Route: 048
     Dates: start: 20120724, end: 20120725
  2. ADVIL [Suspect]
     Dosage: UNK
  3. PROFENID [Suspect]
     Dosage: 100 mg in the operating room; 100 mg during the night and 50 mg in the morning
     Route: 048
     Dates: start: 20120723, end: 20120724
  4. MOPRAL [Suspect]
     Dosage: 20 mg, UNK
     Route: 048
     Dates: start: 20120723, end: 20120723
  5. ATARAX [Concomitant]
     Indication: PREMEDICATION
     Dosage: 100 mg
  6. HYPNOVEL [Concomitant]
     Dosage: 1.5 mg, UNK
     Dates: start: 20120723
  7. SUFENTA [Concomitant]
     Dosage: 20 gamma
     Dates: start: 20120723
  8. DIPRIVAN [Concomitant]
     Dosage: 200 mg, UNK
     Dates: start: 20120723
  9. CEFAZOLIN [Concomitant]
     Dosage: 2 g, UNK
  10. PERFALGAN [Concomitant]
     Dosage: 1 g twice
     Dates: start: 20120723, end: 20120724
  11. PRIMPERAN [Concomitant]
     Dosage: 10 mg, single

REACTIONS (2)
  - Renal failure acute [Recovered/Resolved]
  - Tubulointerstitial nephritis [Recovered/Resolved]
